FAERS Safety Report 9857065 (Version 1)
Quarter: 2014Q1

REPORT INFORMATION
  Report Type: Report from Study
  Country: IT (occurrence: IT)
  Receive Date: 20140130
  Receipt Date: 20140130
  Transmission Date: 20141002
  Serious: Yes (Hospitalization)
  Sender: FDA-Public Use
  Company Number: IT-TEVA-458264ISR

PATIENT
  Age: 76 Year
  Sex: Female

DRUGS (8)
  1. MYOCET [Suspect]
     Indication: HODGKIN^S DISEASE
     Dates: start: 20121012
  2. VINBLASTINA TEVA [Suspect]
     Indication: HODGKIN^S DISEASE
     Dates: start: 20121012
  3. BLEOMICINA [Suspect]
     Indication: HODGKIN^S DISEASE
     Dates: start: 20121012
  4. DETICENE [Suspect]
     Indication: HODGKIN^S DISEASE
     Dates: start: 20121012
  5. LAMIVUDINA [Concomitant]
  6. ACICLOVIR [Concomitant]
  7. PEGFILGRASTIM [Concomitant]
     Dates: start: 20121013, end: 20121013
  8. LEVOFLOXACINA [Concomitant]

REACTIONS (1)
  - Staphylococcal sepsis [Recovered/Resolved]
